FAERS Safety Report 7323977-3 (Version None)
Quarter: 2011Q1

REPORT INFORMATION
  Report Type: 
  Country: None (occurrence: None)
  Receive Date: 20110301
  Receipt Date: 20110228
  Transmission Date: 20110831
  Serious: Yes (Hospitalization)
  Sender: FDA-Public Use
  Company Number: DE-BRISTOL-MYERS SQUIBB COMPANY-15574767

PATIENT
  Age: 60 Year
  Sex: Male

DRUGS (3)
  1. CISPLATIN [Suspect]
     Indication: GASTRIC CANCER
     Dosage: MOST RECENT 04FEB2011
     Route: 042
     Dates: start: 20110204
  2. CETUXIMAB [Suspect]
     Indication: GASTRIC CANCER
     Dosage: MOST RECENT 18FEB2011
     Route: 042
     Dates: start: 20110204
  3. TAXOTERE [Suspect]
     Indication: GASTRIC CANCER
     Dosage: MOST RECENT 04FEB11
     Route: 042
     Dates: start: 20110204

REACTIONS (1)
  - IMPAIRED HEALING [None]
